FAERS Safety Report 5504383-0 (Version None)
Quarter: 2007Q4

REPORT INFORMATION
  Report Type: 
  Country: None (occurrence: None)
  Receive Date: 20071101
  Receipt Date: 20071022
  Transmission Date: 20080405
  Serious: Yes (Other)
  Sender: FDA-Public Use
  Company Number: CA-PFIZER INC-2007076533

PATIENT
  Sex: Male
  Weight: 70.3 kg

DRUGS (8)
  1. LIPITOR [Suspect]
     Indication: BLOOD CHOLESTEROL INCREASED
     Dosage: FREQ:DAILY
     Route: 048
     Dates: start: 20021001, end: 20050601
  2. METFORMIN HCL [Concomitant]
  3. RAMIPRIL [Concomitant]
  4. VERAPAMIL [Concomitant]
  5. METOPROLOL [Concomitant]
  6. VITAMINS [Concomitant]
  7. INSULIN [Concomitant]
  8. GLYBURIDE [Concomitant]
     Dates: start: 19940101, end: 20070101

REACTIONS (12)
  - ADVERSE DRUG REACTION [None]
  - ASTHENIA [None]
  - BALANCE DISORDER [None]
  - DYSSTASIA [None]
  - EXERCISE TOLERANCE DECREASED [None]
  - GAIT DISTURBANCE [None]
  - ILL-DEFINED DISORDER [None]
  - MUSCLE DISORDER [None]
  - MUSCULAR WEAKNESS [None]
  - PAIN [None]
  - PAIN IN EXTREMITY [None]
  - TYPE 1 DIABETES MELLITUS [None]
